FAERS Safety Report 5977562-6 (Version None)
Quarter: 2008Q4

REPORT INFORMATION
  Report Type: 
  Country: None (occurrence: None)
  Receive Date: 20081201
  Receipt Date: 20081201
  Transmission Date: 20090506
  Serious: Yes (Life-Threatening)
  Sender: FDA-Public Use
  Company Number: None

PATIENT
  Age: 51 Year
  Sex: Male
  Weight: 74.8435 kg

DRUGS (4)
  1. CYMBALTA [Suspect]
     Indication: ANXIETY
     Dosage: 30 MG FOR 2 WEEKS THEN 60MG ONCE A DAY
     Dates: start: 20081121, end: 20081123
  2. CYMBALTA [Suspect]
     Indication: DEPRESSION
     Dosage: 30 MG FOR 2 WEEKS THEN 60MG ONCE A DAY
     Dates: start: 20081121, end: 20081123
  3. CYMBALTA [Suspect]
  4. WELBIAN [Concomitant]

REACTIONS (5)
  - DEPRESSION [None]
  - FEELING ABNORMAL [None]
  - NAUSEA [None]
  - SUICIDAL IDEATION [None]
  - VOMITING [None]
